FAERS Safety Report 7135837-1 (Version None)
Quarter: 2010Q4

REPORT INFORMATION
  Report Type: 
  Country: None (occurrence: None)
  Receive Date: 20101203
  Receipt Date: 20101123
  Transmission Date: 20110411
  Serious: Yes (Other)
  Sender: FDA-Public Use
  Company Number: ZA-ABBOTT-10P-143-0620788-00

PATIENT
  Sex: Female

DRUGS (6)
  1. HUMIRA [Suspect]
     Indication: PRODUCT USED FOR UNKNOWN INDICATION
     Route: 058
     Dates: start: 20091101
  2. HUMIRA [Suspect]
     Route: 058
  3. HUMIRA [Suspect]
  4. SULPHASALAZINE [Concomitant]
     Indication: CROHN'S DISEASE
     Route: 048
  5. BUDESONIDE [Concomitant]
     Indication: CROHN'S DISEASE
  6. PENTASA [Concomitant]
     Indication: CROHN'S DISEASE
     Route: 048

REACTIONS (7)
  - DECREASED APPETITE [None]
  - HEADACHE [None]
  - INFLUENZA LIKE ILLNESS [None]
  - MENSTRUATION IRREGULAR [None]
  - NAUSEA [None]
  - WEIGHT INCREASED [None]
  - WHITE BLOOD CELL COUNT DECREASED [None]
